FAERS Safety Report 9724918 (Version 1)
Quarter: 2013Q4

REPORT INFORMATION
  Report Type: Spontaneous
  Country: US (occurrence: US)
  Receive Date: 20131202
  Receipt Date: 20131202
  Transmission Date: 20140711
  Serious: No
  Sender: FDA-Public Use
  Company Number: US-ENDO PHARMACEUTICALS INC.-OXYC20130003

PATIENT
  Age: 48 Year
  Sex: Male

DRUGS (6)
  1. OXYCODONE HCL 30MG [Suspect]
     Indication: PAIN
     Route: 048
  2. OXYCODONE HCL 30MG [Suspect]
     Indication: KNEE OPERATION
     Route: 048
  3. OXYCODONE HCL 30MG [Suspect]
     Indication: SURGERY
  4. HYDROCODONE/ACETAMINOPHEN [Suspect]
     Indication: PRODUCT USED FOR UNKNOWN INDICATION
     Dosage: UNKNOWN
     Route: 065
  5. OXYCONTIN [Concomitant]
     Indication: PAIN
     Dosage: UNKNOWN
     Route: 065
  6. OXYCONTIN [Concomitant]
     Indication: PRODUCT USED FOR UNKNOWN INDICATION
     Dosage: UNKNOWN
     Route: 065

REACTIONS (1)
  - Drug screen positive [Unknown]
